FAERS Safety Report 5150497-7 (Version None)
Quarter: 2006Q4

REPORT INFORMATION
  Report Type: 
  Country: None (occurrence: None)
  Receive Date: 20061114
  Receipt Date: 20060524
  Transmission Date: 20070319
  Serious: Yes (Other)
  Sender: FDA-Public Use
  Company Number: JP-JPN-A200601703

PATIENT
  Age: 50 Year
  Sex: Male
  Weight: 55 kg

DRUGS (2)
  1. ZEFIX [Suspect]
     Indication: HEPATIC CIRRHOSIS
     Dosage: 100MG PER DAY
     Route: 048
     Dates: start: 20020930, end: 20060605
  2. ADEFOVIR DIPIVOXIL [Concomitant]
     Indication: HEPATIC CIRRHOSIS
     Dosage: 10MG PER DAY
     Route: 048
     Dates: start: 20060605

REACTIONS (12)
  - ALANINE AMINOTRANSFERASE INCREASED [None]
  - ASPARTATE AMINOTRANSFERASE INCREASED [None]
  - BILIRUBIN CONJUGATED INCREASED [None]
  - BLOOD ALKALINE PHOSPHATASE INCREASED [None]
  - BLOOD BILIRUBIN INCREASED [None]
  - BLOOD LACTATE DEHYDROGENASE INCREASED [None]
  - BLOOD UREA DECREASED [None]
  - GAMMA-GLUTAMYLTRANSFERASE INCREASED [None]
  - IDIOPATHIC THROMBOCYTOPENIC PURPURA [None]
  - PLATELET COUNT DECREASED [None]
  - RED BLOOD CELL COUNT DECREASED [None]
  - WHITE BLOOD CELL COUNT INCREASED [None]
